FAERS Safety Report 14879973 (Version 1)
Quarter: 2018Q2

REPORT INFORMATION
  Report Type: Spontaneous
  Country: JP (occurrence: JP)
  Receive Date: 20180511
  Receipt Date: 20180511
  Transmission Date: 20180711
  Serious: Yes (Life-Threatening, Hospitalization)
  Sender: FDA-Public Use
  Company Number: PHJP2018JP003630

PATIENT
  Age: 70 Year
  Sex: Female
  Weight: 46 kg

DRUGS (6)
  1. CALONAL [Concomitant]
     Active Substance: ACETAMINOPHEN
     Indication: PRODUCT USED FOR UNKNOWN INDICATION
     Dosage: 900 MG, TID (3 TABLETS PER ADMINISTRATION)
     Route: 048
     Dates: start: 20180205, end: 20180216
  2. PICOSULFATE [Concomitant]
     Active Substance: SODIUM PICOSULFATE
     Indication: PRODUCT USED FOR UNKNOWN INDICATION
     Dosage: 15 GTT, QD
     Route: 048
     Dates: start: 20180213, end: 20180215
  3. DAIKENCHUTO [Concomitant]
     Active Substance: HERBALS
     Indication: PRODUCT USED FOR UNKNOWN INDICATION
     Dosage: 2.5 G, TID
     Route: 065
     Dates: start: 20180207, end: 20180216
  4. MOSAPRIDE [Concomitant]
     Active Substance: MOSAPRIDE
     Indication: PRODUCT USED FOR UNKNOWN INDICATION
     Dosage: 5 MG, TID (1 TABLET PER ADMINISTRATION)
     Route: 048
     Dates: start: 20180207, end: 20180216
  5. VOTRIENT [Suspect]
     Active Substance: PAZOPANIB HYDROCHLORIDE
     Indication: RENAL CANCER METASTATIC
     Dosage: 400 MG, QD
     Route: 048
     Dates: start: 20180209, end: 20180216
  6. AMLODIPINE [Concomitant]
     Active Substance: AMLODIPINE BESYLATE
     Indication: PRODUCT USED FOR UNKNOWN INDICATION
     Dosage: 5 MG, QD (1 TABLET PER ADMINISTRATION)
     Route: 048
     Dates: start: 20180209, end: 20180216

REACTIONS (4)
  - Dizziness [Recovering/Resolving]
  - Aneurysm ruptured [Recovering/Resolving]
  - Fall [Unknown]
  - Intra-abdominal haemorrhage [Recovering/Resolving]

NARRATIVE: CASE EVENT DATE: 20180215
